FAERS Safety Report 16625431 (Version 3)
Quarter: 2019Q3

REPORT INFORMATION
  Report Type: Spontaneous
  Country: US (occurrence: US)
  Receive Date: 20190724
  Receipt Date: 20190808
  Transmission Date: 20191004
  Serious: No
  Sender: FDA-Public Use
  Company Number: US-PFIZER INC-2019313400

PATIENT
  Age: 61 Year
  Sex: Female
  Weight: 63.49 kg

DRUGS (1)
  1. XALKORI [Suspect]
     Active Substance: CRIZOTINIB
     Indication: LUNG CANCER METASTATIC
     Dosage: 250 MG, 2X/DAY
     Route: 048
     Dates: start: 20190709

REACTIONS (6)
  - Diarrhoea [Unknown]
  - Nausea [Unknown]
  - Vision blurred [Unknown]
  - Gastrointestinal motility disorder [Unknown]
  - Cough [Unknown]
  - Visual impairment [Unknown]
